FAERS Safety Report 6489751-5 (Version None)
Quarter: 2009Q4

REPORT INFORMATION
  Report Type: 
  Country: None (occurrence: None)
  Receive Date: 20091207
  Receipt Date: 20091123
  Transmission Date: 20100525
  Serious: Yes (Hospitalization)
  Sender: FDA-Public Use
  Company Number: 2009AC000291

PATIENT
  Age: 73 Year
  Sex: Female

DRUGS (24)
  1. DIGOXIN [Suspect]
     Dosage: .063 MG, QD, PO
     Route: 048
     Dates: start: 20080301
  2. COUMADIN [Concomitant]
  3. PLAVIX [Concomitant]
  4. MOBIC [Concomitant]
  5. NSAID [Concomitant]
  6. ENALAPRIL MALEATE [Concomitant]
  7. AMIODARONE [Concomitant]
  8. METOLAZONE [Concomitant]
  9. FAMOTIDINE [Concomitant]
  10. ALLOPURINOL [Concomitant]
  11. MELOXICAM [Concomitant]
  12. LEVOTHYROXINE SODIUM [Concomitant]
  13. GLYBURIDE [Concomitant]
  14. LASIX [Concomitant]
  15. POTASSIUM CHLORIDE [Concomitant]
  16. NITROGLYCERIN [Concomitant]
  17. FERROUS GLUCONATE [Concomitant]
  18. FERROUS SULFATE TAB [Concomitant]
  19. COLACE [Concomitant]
  20. XANAX [Concomitant]
  21. METOPROLOL TARTRATE [Concomitant]
  22. NITROGLYCERIN [Concomitant]
  23. KLOR-CON [Concomitant]
  24. UNIVASC [Concomitant]

REACTIONS (27)
  - ARTHRALGIA [None]
  - CARDIAC FAILURE CONGESTIVE [None]
  - CARDIAC VALVE DISEASE [None]
  - CHEST PAIN [None]
  - CONDITION AGGRAVATED [None]
  - CONGESTIVE CARDIOMYOPATHY [None]
  - CORONARY ARTERY DISEASE [None]
  - DEEP VEIN THROMBOSIS [None]
  - DIABETES MELLITUS [None]
  - DYSPNOEA [None]
  - ECONOMIC PROBLEM [None]
  - FLUID OVERLOAD [None]
  - HAEMOGLOBIN DECREASED [None]
  - HYPERLIPIDAEMIA [None]
  - HYPERTENSION [None]
  - HYPOTHYROIDISM [None]
  - IMPAIRED HEALING [None]
  - ISCHAEMIC CARDIOMYOPATHY [None]
  - MULTIPLE INJURIES [None]
  - MYOCARDIAL INFARCTION [None]
  - PALPITATIONS [None]
  - PERIPHERAL VASCULAR DISORDER [None]
  - RHEUMATOID ARTHRITIS [None]
  - SURGERY [None]
  - THERAPEUTIC AGENT TOXICITY [None]
  - UNEVALUABLE EVENT [None]
  - VARICOSE VEIN [None]
